FAERS Safety Report 24782489 (Version 2)
Quarter: 2025Q1

REPORT INFORMATION
  Report Type: Spontaneous
  Country: IT (occurrence: IT)
  Receive Date: 20241227
  Receipt Date: 20250113
  Transmission Date: 20250409
  Serious: Yes (Hospitalization, Other)
  Sender: NOVARTIS
  Company Number: IT-002147023-NVSC2024IT242133

PATIENT
  Age: 63 Year
  Sex: Female

DRUGS (9)
  1. MIDOSTAURIN [Suspect]
     Active Substance: MIDOSTAURIN
     Indication: Product used for unknown indication
     Dosage: 50 MG, Q12H (ON DAYS 8-21)
     Route: 048
     Dates: start: 202404
  2. DAUNORUBICIN [Suspect]
     Active Substance: DAUNORUBICIN
     Indication: Product used for unknown indication
     Route: 042
  3. CYTARABINE [Suspect]
     Active Substance: CYTARABINE
     Indication: Product used for unknown indication
     Dosage: UNK, Q12H (1500 MG/SQM, ON DAYS 1, 3, 5)
     Route: 042
     Dates: start: 202404
  4. LEVOFLOXACIN [Concomitant]
     Active Substance: LEVOFLOXACIN
     Indication: Prophylaxis
     Route: 048
  5. POSACONAZOLE [Concomitant]
     Active Substance: POSACONAZOLE
     Indication: Prophylaxis
     Route: 048
  6. ISAVUCONAZOLE [Concomitant]
     Active Substance: ISAVUCONAZOLE
     Indication: Antifungal treatment
     Route: 065
  7. CYCLOSPORINE [Concomitant]
     Active Substance: CYCLOSPORINE
     Indication: Immunosuppressant drug therapy
     Route: 065
  8. RITUXIMAB [Concomitant]
     Active Substance: RITUXIMAB
     Indication: Antiviral prophylaxis
     Route: 065
  9. VALGANCICLOVIR [Concomitant]
     Active Substance: VALGANCICLOVIR
     Indication: Antiviral prophylaxis
     Route: 065

REACTIONS (10)
  - Seronegative arthritis [Unknown]
  - Gastrointestinal infection [Unknown]
  - Febrile neutropenia [Recovered/Resolved]
  - Pneumonia fungal [Recovered/Resolved]
  - Musculoskeletal pain [Unknown]
  - Thrombosis [Unknown]
  - Hepatotoxicity [Unknown]
  - Bacteraemia [Unknown]
  - Chronic graft versus host disease [Recovering/Resolving]
  - Traumatic fracture [Unknown]

NARRATIVE: CASE EVENT DATE: 20241001
